FAERS Safety Report 7467261-6 (Version None)
Quarter: 2011Q2

REPORT INFORMATION
  Report Type: 
  Country: None (occurrence: None)
  Receive Date: 20110509
  Receipt Date: 20101115
  Transmission Date: 20111010
  Serious: No
  Sender: FDA-Public Use
  Company Number: US-ALEXION-A201001471

PATIENT
  Sex: Male
  Weight: 78.458 kg

DRUGS (2)
  1. SOLIRIS [Suspect]
     Indication: PAROXYSMAL NOCTURNAL HAEMOGLOBINURIA
     Dosage: 600 MG, QW
     Route: 042
     Dates: start: 20090218
  2. SOLIRIS [Suspect]
     Dosage: 900 MG, Q2W
     Route: 042
     Dates: start: 20090318

REACTIONS (6)
  - WEIGHT DECREASED [None]
  - DYSPNOEA [None]
  - SCLERAL DISCOLOURATION [None]
  - FATIGUE [None]
  - DISEASE PROGRESSION [None]
  - BLOOD BILIRUBIN INCREASED [None]
